FAERS Safety Report 25017461 (Version 1)
Quarter: 2025Q1

REPORT INFORMATION
  Report Type: Spontaneous
  Country: US (occurrence: None)
  Receive Date: 20250227
  Receipt Date: 20250227
  Transmission Date: 20250408
  Serious: Yes (Hospitalization)
  Sender: FDA-CTU
  Company Number: None

PATIENT
  Age: 64 Year
  Sex: Female
  Weight: 89.5 kg

DRUGS (2)
  1. DOXORUBICIN HYDROCHLORIDE [Suspect]
     Active Substance: DOXORUBICIN HYDROCHLORIDE
  2. IFOSFAMIDE [Suspect]
     Active Substance: IFOSFAMIDE
     Dates: end: 20250130

REACTIONS (13)
  - Fall [None]
  - Hallucination, visual [None]
  - Abdominal pain [None]
  - Sepsis [None]
  - Hyperbilirubinaemia [None]
  - Biliary obstruction [None]
  - Cholelithiasis [None]
  - Hypertransaminasaemia [None]
  - Acute kidney injury [None]
  - Troponin increased [None]
  - Coronavirus infection [None]
  - Neutropenia [None]
  - Ejection fraction [None]

NARRATIVE: CASE EVENT DATE: 20250205
